FAERS Safety Report 21411792 (Version 1)
Quarter: 2022Q4

REPORT INFORMATION
  Report Type: Spontaneous
  Country: US (occurrence: None)
  Receive Date: 20221005
  Receipt Date: 20221005
  Transmission Date: 20230113
  Serious: Yes (Hospitalization, Other)
  Sender: FDA-Public Use
  Company Number: None

PATIENT
  Age: 15 Year
  Sex: Male
  Weight: 54.43 kg

DRUGS (4)
  1. SUPPRELIN [Suspect]
     Active Substance: HISTRELIN ACETATE
  2. DEXMETHYLPHENIADATE HCI [Concomitant]
  3. FLUOXETINE HYDROCHLORIDE [Concomitant]
     Active Substance: FLUOXETINE HYDROCHLORIDE
  4. SUPPRELIN [Concomitant]
     Active Substance: HISTRELIN ACETATE

REACTIONS (5)
  - Nerve injury [None]
  - Device dislocation [None]
  - Anxiety [None]
  - Post-traumatic stress disorder [None]
  - Communication disorder [None]

NARRATIVE: CASE EVENT DATE: 20201007
